FAERS Safety Report 17361572 (Version 1)
Quarter: 2020Q1

REPORT INFORMATION
  Report Type: Spontaneous
  Country: US (occurrence: US)
  Receive Date: 20200131
  Receipt Date: 20200131
  Transmission Date: 20200409
  Serious: Yes (Life-Threatening, Other)
  Sender: FDA-Public Use
  Company Number: None

PATIENT
  Age: 85 Year
  Sex: Male
  Weight: 65.25 kg

DRUGS (23)
  1. LISINOPRIL. [Concomitant]
     Active Substance: LISINOPRIL
  2. TAMSULOSIN [Concomitant]
     Active Substance: TAMSULOSIN
  3. OXYBUTYNIN. [Concomitant]
     Active Substance: OXYBUTYNIN CHLORIDE
  4. NITROGLYCERIN. [Concomitant]
     Active Substance: NITROGLYCERIN
  5. WELCHOL [Concomitant]
     Active Substance: COLESEVELAM HYDROCHLORIDE
  6. DOXAZOSIN [Concomitant]
     Active Substance: DOXAZOSIN MESYLATE
  7. GEMFIBROZIL. [Concomitant]
     Active Substance: GEMFIBROZIL
  8. MYRBETRIQ [Concomitant]
     Active Substance: MIRABEGRON
  9. GLIPIZIDE/METFORMIN COMBINATION [Concomitant]
  10. ALENDRONATE [Concomitant]
     Active Substance: ALENDRONATE SODIUM
  11. ESOMEPRAZOLE. [Concomitant]
     Active Substance: ESOMEPRAZOLE MAGNESIUM
  12. ELIQUIS [Suspect]
     Active Substance: APIXABAN
     Indication: PROMOTION OF PERIPHERAL CIRCULATION
     Dosage: ?          QUANTITY:1 TABLET(S);?
     Route: 048
     Dates: start: 20200114, end: 20200116
  13. METOPROLOL. [Concomitant]
     Active Substance: METOPROLOL
  14. OZEMPIC [Concomitant]
     Active Substance: SEMAGLUTIDE
  15. DOXYCYCLINE. [Concomitant]
     Active Substance: DOXYCYCLINE
  16. CARVEDILOL. [Concomitant]
     Active Substance: CARVEDILOL
  17. LOPERAMIDE [Concomitant]
     Active Substance: LOPERAMIDE
  18. METOLAZONE. [Concomitant]
     Active Substance: METOLAZONE
  19. GABAPENTIN. [Concomitant]
     Active Substance: GABAPENTIN
  20. JANUVIA [Concomitant]
     Active Substance: SITAGLIPTIN PHOSPHATE
  21. ALLOPURINOL. [Concomitant]
     Active Substance: ALLOPURINOL
  22. CALCIUM [Concomitant]
     Active Substance: CALCIUM
  23. DONEPEZIL. [Concomitant]
     Active Substance: DONEPEZIL

REACTIONS (2)
  - Diarrhoea [None]
  - Near death experience [None]

NARRATIVE: CASE EVENT DATE: 20200116
